FAERS Safety Report 5298799-8 (Version None)
Quarter: 2007Q2

REPORT INFORMATION
  Report Type: 
  Country: None (occurrence: None)
  Receive Date: 20070411
  Receipt Date: 20070411
  Transmission Date: 20071010
  Serious: Yes (Hospitalization)
  Sender: FDA-Public Use
  Company Number: None

PATIENT
  Age: 53 Year
  Sex: Male
  Weight: 59.5 kg

DRUGS (1)
  1. LINEZOLID [Suspect]
     Indication: ENDOCARDITIS
     Dosage: 1200MG, 600MG BID, ORAL
     Route: 048
     Dates: start: 20070131, end: 20070223

REACTIONS (1)
  - ANAEMIA [None]
